FAERS Safety Report 26186983 (Version 1)
Quarter: 2025Q4

REPORT INFORMATION
  Report Type: Spontaneous
  Country: AU (occurrence: AU)
  Receive Date: 20251222
  Receipt Date: 20251222
  Transmission Date: 20260117
  Serious: Yes (Death, Other)
  Sender: CIPLA
  Company Number: AU-CIPLA (EU) LIMITED-2025AU16243

PATIENT

DRUGS (1)
  1. FINASTERIDE [Suspect]
     Active Substance: FINASTERIDE
     Indication: Product used for unknown indication
     Dosage: UNK, FILM-COATED TABLET
     Route: 065

REACTIONS (6)
  - Completed suicide [Fatal]
  - Brain fog [Unknown]
  - Bradyphrenia [Unknown]
  - Sensory loss [Unknown]
  - Insomnia [Unknown]
  - Dizziness [Unknown]

NARRATIVE: CASE EVENT DATE: 20220101
